FAERS Safety Report 18438433 (Version 7)
Quarter: 2021Q4

REPORT INFORMATION
  Report Type: Report from Study
  Country: US (occurrence: US)
  Receive Date: 20201028
  Receipt Date: 20211105
  Transmission Date: 20220303
  Serious: Yes (Other)
  Sender: FDA-Public Use
  Company Number: US-BOEHRINGERINGELHEIM-2020-BI-018182

PATIENT
  Age: 55 Year
  Sex: Female

DRUGS (2)
  1. OFEV [Suspect]
     Active Substance: NINTEDANIB
     Indication: Idiopathic pulmonary fibrosis
     Dosage: 150 MG BID
     Route: 048
     Dates: start: 20200217
  2. OFEV [Suspect]
     Active Substance: NINTEDANIB
     Dosage: 1 CAPSULE
     Route: 048

REACTIONS (18)
  - Gastric haemorrhage [Unknown]
  - Systemic lupus erythematosus [Unknown]
  - Diarrhoea [Unknown]
  - Abdominal discomfort [Unknown]
  - Flatulence [Unknown]
  - Abdominal discomfort [Unknown]
  - Abdominal distension [Unknown]
  - Abdominal pain upper [Unknown]
  - Diarrhoea [Recovering/Resolving]
  - Weight increased [Unknown]
  - Arthralgia [Unknown]
  - Haematochezia [Unknown]
  - Inflammation [Unknown]
  - Peripheral swelling [Unknown]
  - Pain in extremity [Unknown]
  - Joint swelling [Unknown]
  - Back pain [Unknown]
  - Stress [Unknown]

NARRATIVE: CASE EVENT DATE: 20200201
